FAERS Safety Report 14878338 (Version 1)
Quarter: 2018Q2

REPORT INFORMATION
  Report Type: Spontaneous
  Country: US (occurrence: US)
  Receive Date: 20180511
  Receipt Date: 20180511
  Transmission Date: 20180711
  Serious: No
  Sender: FDA-Public Use
  Company Number: US-BAUSCH-BL-2017-030129

PATIENT
  Sex: Female
  Weight: 81.72 kg

DRUGS (1)
  1. LATANOPROST. [Suspect]
     Active Substance: LATANOPROST
     Indication: GLAUCOMA
     Dosage: TWO DROPS IN ONE EYE AND THREE DROP IN THE OTHER EYE
     Route: 047
     Dates: start: 20171024

REACTIONS (2)
  - Eye irritation [Recovered/Resolved]
  - Product storage error [Unknown]
